FAERS Safety Report 10803356 (Version 3)
Quarter: 2021Q4

REPORT INFORMATION
  Report Type: Spontaneous
  Country: JP (occurrence: JP)
  Receive Date: 20150217
  Receipt Date: 20211102
  Transmission Date: 20220303
  Serious: Yes (Life-Threatening, Hospitalization)
  Sender: FDA-Public Use
  Company Number: JP-BAYER-2015-023430

PATIENT
  Age: 67 Year
  Sex: Male
  Weight: 51 kg

DRUGS (6)
  1. NEXAVAR [Suspect]
     Active Substance: SORAFENIB
     Indication: Hepatocellular carcinoma
     Dosage: DAILY DOSE 400 MG
     Route: 048
     Dates: start: 20141210, end: 20150204
  2. CANDESARTAN CILEXETIL [Concomitant]
     Active Substance: CANDESARTAN CILEXETIL
     Indication: Hypertension
     Dosage: DAILY DOSE 8 MG
     Route: 048
     Dates: start: 20150115
  3. BARACLUDE [Concomitant]
     Active Substance: ENTECAVIR
     Indication: Chronic hepatitis B
     Dosage: DAILY DOSE .5 MG
     Route: 048
     Dates: start: 20140114
  4. RABEPRAZOLE SODIUM [Concomitant]
     Active Substance: RABEPRAZOLE SODIUM
     Indication: Gastrooesophageal reflux disease
     Dosage: DAILY DOSE 10 MG
     Route: 048
     Dates: start: 20140114
  5. PYRIDOXAL [Concomitant]
     Active Substance: PYRIDOXAL
     Indication: Prophylaxis
     Dosage: DAILY DOSE 30 MG
     Route: 048
     Dates: start: 20141209, end: 20150204
  6. BROTIZOLAM [Concomitant]
     Active Substance: BROTIZOLAM
     Indication: Insomnia
     Dosage: DAILY DOSE .25 MG
     Route: 048
     Dates: start: 20140109

REACTIONS (2)
  - Aortic dissection [Recovering/Resolving]
  - Blood pressure increased [None]

NARRATIVE: CASE EVENT DATE: 20150204
